FAERS Safety Report 11633784 (Version 1)
Quarter: 2015Q4

REPORT INFORMATION
  Report Type: Spontaneous
  Country: US (occurrence: US)
  Receive Date: 20151015
  Receipt Date: 20151015
  Transmission Date: 20160304
  Serious: No
  Sender: FDA-Public Use
  Company Number: US-INDIVIOR-RB-73306-2014

PATIENT
  Age: 59 Year
  Sex: Male

DRUGS (2)
  1. SUBOXONE [Suspect]
     Active Substance: BUPRENORPHINE HYDROCHLORIDE\NALOXONE HYDROCHLORIDE
     Indication: PAIN
     Dosage: TOOK ONE DOSE - 2 MG
     Route: 060
     Dates: start: 201410, end: 201410
  2. SUBOXONE [Suspect]
     Active Substance: BUPRENORPHINE HYDROCHLORIDE\NALOXONE HYDROCHLORIDE
     Dosage: CUT THE FILM AND TOOK 1 MG IN THE MORNING AND 1 MG IN THE EVENING AS NEEDED
     Route: 060
     Dates: start: 201410, end: 201412

REACTIONS (6)
  - Intentional underdose [Recovered/Resolved]
  - Feeling drunk [Not Recovered/Not Resolved]
  - Product preparation error [Recovered/Resolved]
  - Drug prescribing error [Recovered/Resolved]
  - Off label use [Recovered/Resolved]
  - Somnolence [Recovered/Resolved]

NARRATIVE: CASE EVENT DATE: 201410
